FAERS Safety Report 25026537 (Version 1)
Quarter: 2025Q1

REPORT INFORMATION
  Report Type: Spontaneous
  Country: US (occurrence: US)
  Receive Date: 20250301
  Receipt Date: 20250301
  Transmission Date: 20250409
  Serious: Yes (Hospitalization, Other)
  Sender: UNITED THERAPEUTICS
  Company Number: US-UNITED THERAPEUTICS-UNT-2023-011577

PATIENT
  Sex: Female
  Weight: 60.317 kg

DRUGS (16)
  1. TYVASO [Suspect]
     Active Substance: TREPROSTINIL
     Indication: Pulmonary arterial hypertension
     Dosage: 54 ?G, QID
     Dates: start: 20221116
  2. TYVASO [Suspect]
     Active Substance: TREPROSTINIL
  3. TYVASO [Suspect]
     Active Substance: TREPROSTINIL
  4. ADCIRCA [Concomitant]
     Active Substance: TADALAFIL
     Indication: Pulmonary arterial hypertension
     Dosage: 40 MG, QD
  5. VITAMIN C [Concomitant]
     Active Substance: ASCORBIC ACID
     Indication: Product used for unknown indication
     Dosage: 1000 MG, QD
  6. LIPITOR [Concomitant]
     Active Substance: ATORVASTATIN CALCIUM
     Indication: Product used for unknown indication
     Dosage: 40 MG, QD
  7. CHOLECALCIFEROL [Concomitant]
     Active Substance: CHOLECALCIFEROL
     Indication: Product used for unknown indication
     Dosage: 50 ?G, QD (2000 UNIT)
  8. VASOTEC [Concomitant]
     Active Substance: ENALAPRIL MALEATE
     Indication: Product used for unknown indication
     Dosage: 20 MG, BID
  9. NEURONTIN [Concomitant]
     Active Substance: GABAPENTIN
     Indication: Product used for unknown indication
     Dosage: 600 MG, TID
  10. NORCO [Concomitant]
     Active Substance: ACETAMINOPHEN\HYDROCODONE BITARTRATE
     Indication: Product used for unknown indication
  11. JARDIANCE [Concomitant]
     Active Substance: EMPAGLIFLOZIN
     Indication: Product used for unknown indication
     Dosage: 10 MG, QD
  12. PRILOSEC [Concomitant]
     Active Substance: OMEPRAZOLE MAGNESIUM
     Indication: Product used for unknown indication
     Dosage: 20 MG, BID, (BEFORE MEALS)
  13. ALDACTONE [Concomitant]
     Active Substance: SPIRONOLACTONE
     Indication: Product used for unknown indication
     Dosage: 25 MG, QD
  14. COUMADIN [Concomitant]
     Active Substance: WARFARIN SODIUM
     Indication: Product used for unknown indication
  15. COUMADIN [Concomitant]
     Active Substance: WARFARIN SODIUM
  16. DILTIAZEM [Concomitant]
     Active Substance: DILTIAZEM
     Indication: Product used for unknown indication

REACTIONS (14)
  - Cardiac failure congestive [Unknown]
  - Cardiac failure acute [Unknown]
  - Atrial fibrillation [Unknown]
  - Pulmonary arterial hypertension [Not Recovered/Not Resolved]
  - Pulmonary oedema [Not Recovered/Not Resolved]
  - Hypervolaemia [Not Recovered/Not Resolved]
  - Tachycardia [Recovered/Resolved]
  - Right ventricular dilatation [Unknown]
  - Weight increased [Unknown]
  - Blood potassium decreased [Unknown]
  - Vasodilatation [Not Recovered/Not Resolved]
  - Oedema peripheral [Unknown]
  - Oedema [Unknown]
  - Intentional product use issue [Unknown]

NARRATIVE: CASE EVENT DATE: 20230101
